FAERS Safety Report 23647697 (Version 2)
Quarter: 2024Q1

REPORT INFORMATION
  Report Type: Report from Study
  Country: US (occurrence: US)
  Receive Date: 20240319
  Receipt Date: 20240327
  Transmission Date: 20240410
  Serious: Yes (Other)
  Sender: FDA-Public Use
  Company Number: US-UCBSA-2023048233

PATIENT
  Age: 24 Year
  Sex: Female

DRUGS (3)
  1. FINTEPLA [Suspect]
     Active Substance: FENFLURAMINE
     Indication: Lennox-Gastaut syndrome
     Dosage: 6 MILLIGRAM, 2X/DAY (BID)
     Route: 048
     Dates: start: 20211213
  2. FINTEPLA [Suspect]
     Active Substance: FENFLURAMINE
     Dosage: 6 MILLIGRAM, 2X/DAY (BID)
     Route: 048
  3. FINTEPLA [Suspect]
     Active Substance: FENFLURAMINE
     Dosage: 6 MILLILITER, 2X/DAY (BID)
     Route: 048
     Dates: start: 202112

REACTIONS (4)
  - Seizure [Not Recovered/Not Resolved]
  - COVID-19 [Recovered/Resolved]
  - Product storage error [Unknown]
  - Product quality issue [Unknown]

NARRATIVE: CASE EVENT DATE: 20230901
